FAERS Safety Report 8919865 (Version 1)
Quarter: 2012Q4

REPORT INFORMATION
  Report Type: 
  Country: US (occurrence: US)
  Receive Date: 20121121
  Receipt Date: 20121121
  Transmission Date: 20130627
  Serious: Yes (Other)
  Sender: FDA-Public Use
  Company Number: US-CUBIST-2012S1000927

PATIENT
  Sex: Male

DRUGS (2)
  1. CUBICIN [Suspect]
     Indication: STAPHYLOCOCCAL INFECTION
     Dates: start: 2012, end: 2012
  2. CUBICIN [Suspect]
     Indication: EPIDIDYMITIS
     Dates: start: 2012, end: 2012

REACTIONS (1)
  - Pneumonia [Recovered/Resolved]
